FAERS Safety Report 10262757 (Version 1)
Quarter: 2014Q2

REPORT INFORMATION
  Report Type: Spontaneous
  Country: KR (occurrence: KR)
  Receive Date: 20140626
  Receipt Date: 20140626
  Transmission Date: 20141212
  Serious: Yes (Other)
  Sender: FDA-Public Use
  Company Number: KR-ACTAVIS-2014-14302

PATIENT
  Age: 75 Year
  Sex: Female

DRUGS (9)
  1. OXYCODONE (UNKNOWN) [Suspect]
     Indication: PROCEDURAL PAIN
     Dosage: 10 MG, UNKNOWN
     Route: 048
  2. PREGABALIN (UNKNOWN) [Interacting]
     Indication: PROCEDURAL PAIN
     Dosage: 150 MG, UNKNOWN
     Route: 048
  3. FENTANYL (UNKNOWN) [Interacting]
     Indication: PROCEDURAL PAIN
     Dosage: UNKNOWN
     Route: 042
  4. RAMOSETRON [Interacting]
     Indication: PROPHYLAXIS OF NAUSEA AND VOMITING
     Dosage: UNKNOWN
     Route: 042
  5. KETOROLAC [Concomitant]
     Indication: PROCEDURAL PAIN
     Dosage: UNKNOWN
     Route: 042
  6. CELECOXIB [Concomitant]
     Indication: PROCEDURAL PAIN
     Dosage: 400 MG, UNK; DIVIDED DOSE
     Route: 048
  7. PROPOFOL [Concomitant]
     Indication: INDUCTION OF ANAESTHESIA
     Dosage: 150 MG, UNKNOWN
     Route: 065
  8. ROCURONIUM [Concomitant]
     Indication: INDUCTION OF ANAESTHESIA
     Dosage: 50 MG, UNKNOWN
     Route: 065
  9. DESFLURANE [Concomitant]
     Indication: INDUCTION OF ANAESTHESIA
     Dosage: UNKNOWN
     Route: 065

REACTIONS (9)
  - Serotonin syndrome [Recovered/Resolved]
  - Potentiating drug interaction [Recovered/Resolved]
  - Bundle branch block right [None]
  - Supraventricular extrasystoles [None]
  - Diastolic dysfunction [None]
  - Left atrial dilatation [None]
  - Hypoxia [None]
  - Procedural haemorrhage [None]
  - Delayed recovery from anaesthesia [None]
